FAERS Safety Report 6856732-9 (Version None)
Quarter: 2010Q3

REPORT INFORMATION
  Report Type: 
  Country: None (occurrence: None)
  Receive Date: 20100719
  Receipt Date: 20100709
  Transmission Date: 20110219
  Serious: Yes (Other)
  Sender: FDA-Public Use
  Company Number: US-BAYER-201024258NA

PATIENT
  Sex: Female

DRUGS (2)
  1. BETAPACE [Suspect]
     Indication: ATRIAL FIBRILLATION
     Dosage: TOTAL DAILY DOSE: 240 MG  UNIT DOSE: 120 MG
     Route: 048
     Dates: start: 20100101, end: 20100101
  2. BETAPACE [Suspect]
     Dosage: TOTAL DAILY DOSE: 240 MG  UNIT DOSE: 120 MG
     Route: 048
     Dates: start: 20100101

REACTIONS (6)
  - ABDOMINAL DISCOMFORT [None]
  - ATRIAL FIBRILLATION [None]
  - BLOOD POTASSIUM DECREASED [None]
  - BLOOD PRESSURE INCREASED [None]
  - HEART RATE INCREASED [None]
  - HIATUS HERNIA [None]
